FAERS Safety Report 17461003 (Version 2)
Quarter: 2020Q1

REPORT INFORMATION
  Report Type: Spontaneous
  Country: JP (occurrence: JP)
  Receive Date: 20200226
  Receipt Date: 20200319
  Transmission Date: 20200409
  Serious: Yes (Other)
  Sender: FDA-Public Use
  Company Number: JP-AMGEN-JPNSP2020030146

PATIENT
  Age: 85 Year
  Sex: Female

DRUGS (9)
  1. PRALIA [Suspect]
     Active Substance: DENOSUMAB
     Indication: OSTEOPOROSIS
     Dosage: 60 MILLIGRAM, Q6MO
     Route: 058
     Dates: start: 20160803, end: 20170808
  2. OXYBUTYNIN HYDROCHLORIDE [Concomitant]
     Active Substance: OXYBUTYNIN CHLORIDE
     Dosage: 2 MILLIGRAM, TID
     Route: 048
  3. DONEPEZIL HYDROCHLORIDE. [Concomitant]
     Active Substance: DONEPEZIL HYDROCHLORIDE
     Dosage: 5 MG, QD
     Route: 048
  4. PRALIA [Suspect]
     Active Substance: DENOSUMAB
     Indication: RHEUMATOID ARTHRITIS
     Dosage: UNK
     Route: 058
  5. AMLODIPINE [Concomitant]
     Active Substance: AMLODIPINE BESYLATE
     Dosage: 2.5 MILLIGRAM, QD
     Route: 048
  6. FAMOTIDINE. [Concomitant]
     Active Substance: FAMOTIDINE
     Dosage: 10 MG, BID
     Route: 048
  7. VOGLIBOSE [Concomitant]
     Active Substance: VOGLIBOSE
     Dosage: 0.2 MG, TID
     Route: 048
  8. PITAVASTATIN CA KYORIN [Concomitant]
     Dosage: 2 MG, QD
     Route: 048
  9. CANDESARTAN. [Concomitant]
     Active Substance: CANDESARTAN
     Dosage: 12 MILLIGRAM, QD
     Route: 048

REACTIONS (1)
  - Osteonecrosis of jaw [Recovered/Resolved]
